FAERS Safety Report 9238864 (Version 1)
Quarter: 2013Q2

REPORT INFORMATION
  Report Type: Spontaneous
  Country: US (occurrence: None)
  Receive Date: 20130417
  Receipt Date: 20130417
  Transmission Date: 20140414
  Serious: Yes (Hospitalization)
  Sender: FDA-Public Use
  Company Number: None

PATIENT
  Sex: Male
  Weight: 109 kg

DRUGS (2)
  1. METHOTREXATE [Suspect]
     Dosage: 19840 MG TOTAL DOSE
  2. RITUXIMAB [Suspect]
     Dosage: 925 MG

REACTIONS (2)
  - Hypotension [None]
  - Orthostatic hypotension [None]
